FAERS Safety Report 8880369 (Version 1)
Quarter: 2012Q4

REPORT INFORMATION
  Report Type: 
  Country: NL (occurrence: NL)
  Receive Date: 20121101
  Receipt Date: 20121101
  Transmission Date: 20130627
  Serious: Yes (Hospitalization)
  Sender: FDA-Public Use
  Company Number: NL-PFIZER INC-2012266633

PATIENT
  Sex: Male
  Weight: 119 kg

DRUGS (10)
  1. SOMATROPIN [Suspect]
     Indication: GROWTH HORMONE DEFICIENCY
     Dosage: 0.4 mg, 7/wk
     Route: 058
     Dates: start: 20030724
  2. DESMOPRESSIN [Concomitant]
     Indication: ADH DECREASED
     Dosage: UNK
     Dates: start: 20010701
  3. ESOMEPRAZOLE [Concomitant]
     Indication: PROPHYLAXIS
     Dosage: UNK
     Dates: start: 20030731
  4. LEVOTHYROXINE [Concomitant]
     Indication: TSH DECREASE
     Dosage: UNK
     Dates: start: 20010701
  5. FERROGRADUMET [Concomitant]
     Indication: ANAEMIA
     Dosage: UNK
     Dates: start: 20031107
  6. TESTOSTERONE [Concomitant]
     Indication: LH DECREASED
     Dosage: UNK
     Dates: start: 20010701
  7. TESTOSTERONE [Concomitant]
     Indication: FSH DECREASED
  8. SALBUTAMOL [Concomitant]
     Indication: COPD
     Dosage: UNK
     Dates: start: 20010701
  9. IPRATROPIUM [Concomitant]
     Indication: RESPIRATORY DISORDER
     Dosage: UNK
     Dates: start: 20010701
  10. SYMBICORT [Concomitant]
     Indication: RESPIRATORY DISORDER
     Dosage: UNK

REACTIONS (2)
  - Urethral stenosis [Unknown]
  - Condition aggravated [Unknown]
